FAERS Safety Report 9868397 (Version 1)
Quarter: 2014Q1

REPORT INFORMATION
  Report Type: Spontaneous
  Country: US (occurrence: US)
  Receive Date: 20140204
  Receipt Date: 20140204
  Transmission Date: 20141002
  Serious: No
  Sender: FDA-Public Use
  Company Number: US-B.I. PHARMACEUTICALS,INC./RIDGEFIELD-2014-BI-03275BP

PATIENT
  Sex: Male
  Weight: 68.03 kg

DRUGS (2)
  1. AGGRENOX [Suspect]
     Indication: PRODUCT USED FOR UNKNOWN INDICATION
     Dosage: 2 ANZ
     Route: 048
     Dates: start: 2008
  2. AGGRENOX [Suspect]
     Dosage: 1 ANZ
     Route: 048

REACTIONS (3)
  - Gastrointestinal haemorrhage [Unknown]
  - Anaemia [Unknown]
  - Platelet count abnormal [Unknown]
